FAERS Safety Report 5975034-6 (Version None)
Quarter: 2008Q4

REPORT INFORMATION
  Report Type: 
  Country: None (occurrence: None)
  Receive Date: 20081202
  Receipt Date: 20081128
  Transmission Date: 20090506
  Serious: Yes (Life-Threatening, Hospitalization)
  Sender: FDA-Public Use
  Company Number: DE-WYE-G02590108

PATIENT
  Sex: Male
  Weight: 59 kg

DRUGS (1)
  1. TORISEL [Suspect]
     Indication: METASTATIC RENAL CELL CARCINOMA
     Route: 042
     Dates: start: 20081015, end: 20081112

REACTIONS (3)
  - HYPERKALAEMIA [None]
  - METABOLIC ACIDOSIS [None]
  - RENAL FAILURE [None]
